FAERS Safety Report 11745747 (Version 1)
Quarter: 2015Q4

REPORT INFORMATION
  Report Type: Spontaneous
  Country: US (occurrence: None)
  Receive Date: 20151116
  Receipt Date: 20151116
  Transmission Date: 20160304
  Serious: Yes (Other)
  Sender: FDA-Public Use
  Company Number: None

PATIENT
  Age: 56 Year
  Sex: Female
  Weight: 49.9 kg

DRUGS (8)
  1. ATIVAN [Concomitant]
     Active Substance: LORAZEPAM
  2. BABY ASA [Concomitant]
     Active Substance: ASPIRIN
  3. FOLIC ACID. [Concomitant]
     Active Substance: FOLIC ACID
  4. INVEGA [Suspect]
     Active Substance: PALIPERIDONE
     Indication: ALCOHOL ABUSE
  5. MVI [Concomitant]
     Active Substance: VITAMINS
  6. BP MED [Concomitant]
  7. VITAMIN B12 [Concomitant]
     Active Substance: CYANOCOBALAMIN
  8. INVEGA [Suspect]
     Active Substance: PALIPERIDONE
     Indication: DEPRESSION

REACTIONS (9)
  - Gait disturbance [None]
  - Staring [None]
  - Dyskinesia [None]
  - Drooling [None]
  - Psychomotor skills impaired [None]
  - Communication disorder [None]
  - VIIth nerve paralysis [None]
  - Dysphagia [None]
  - Cerebrovascular accident [None]

NARRATIVE: CASE EVENT DATE: 20151114
